FAERS Safety Report 7116698-3 (Version None)
Quarter: 2010Q4

REPORT INFORMATION
  Report Type: 
  Country: None (occurrence: None)
  Receive Date: 20101122
  Receipt Date: 20101115
  Transmission Date: 20110411
  Serious: Yes (Other)
  Sender: FDA-Public Use
  Company Number: B0685483A

PATIENT
  Age: 87 Year
  Sex: Male

DRUGS (6)
  1. AVIDART [Suspect]
     Route: 048
     Dates: start: 20081201, end: 20090901
  2. TRILEPTAL [Concomitant]
     Route: 048
     Dates: start: 20010101
  3. UNKNOWN DRUG [Concomitant]
     Indication: ATRIAL FIBRILLATION
     Route: 048
     Dates: start: 20080901
  4. PLAVIX [Concomitant]
     Indication: ATRIAL FIBRILLATION
     Route: 048
     Dates: start: 20081001
  5. ALFUZOSINE HYDROCHLORIDE [Concomitant]
     Route: 048
     Dates: start: 20080901
  6. NEXIUM [Concomitant]
     Route: 048
     Dates: start: 20040101

REACTIONS (2)
  - HOT FLUSH [None]
  - HYPERHIDROSIS [None]
